FAERS Safety Report 10442367 (Version 2)
Quarter: 2019Q4

REPORT INFORMATION
  Report Type: Spontaneous
  Country: BR (occurrence: BR)
  Receive Date: 20140909
  Receipt Date: 20191111
  Transmission Date: 20200122
  Serious: Yes (Other)
  Sender: FDA-Public Use
  Company Number: BR-SA-2014SA120288

PATIENT
  Sex: Female
  Weight: 50 kg

DRUGS (2)
  1. GALVUS [Concomitant]
     Active Substance: VILDAGLIPTIN
     Indication: DIABETES MELLITUS
     Dosage: 1 TABLET BEFORE LUNCH AND 1 BEFORE DINNER
     Route: 048
     Dates: start: 2015
  2. LANTUS [Suspect]
     Active Substance: INSULIN GLARGINE
     Indication: DIABETES MELLITUS
     Dosage: 30 IU AT MORNING, 40 IU IF IT WAS HIGH DURING THE DAY, AND BEFORE TO SLEEP 25 IU/ 3 OR 4 TIMES A DAY
     Route: 030
     Dates: start: 2010

REACTIONS (8)
  - Condition aggravated [Not Recovered/Not Resolved]
  - Injection site pain [Unknown]
  - Incorrect route of product administration [Unknown]
  - Inappropriate schedule of product administration [Unknown]
  - Multiple use of single-use product [Unknown]
  - Expired device used [Unknown]
  - Deafness [Not Recovered/Not Resolved]
  - Product storage error [Unknown]
